FAERS Safety Report 4264632-6 (Version None)
Quarter: 2004Q1

REPORT INFORMATION
  Report Type: 
  Country: None (occurrence: None)
  Receive Date: 20040105
  Receipt Date: 20031223
  Transmission Date: 20041129
  Serious: Yes (Hospitalization)
  Sender: FDA-Public Use
  Company Number: 200322976GDDC

PATIENT
  Age: 75 Year
  Sex: Male

DRUGS (1)
  1. DESMOPRESSIN ACETATE [Suspect]
     Indication: INCONTINENCE
     Dosage: 20 UG QD IN
     Route: 055
     Dates: start: 20030615, end: 20030920

REACTIONS (5)
  - BLOOD PRESSURE SYSTOLIC INCREASED [None]
  - EXTRASYSTOLES [None]
  - FLUID RETENTION [None]
  - PULMONARY OEDEMA [None]
  - VENTRICULAR HYPERTROPHY [None]
